FAERS Safety Report 10471111 (Version 1)
Quarter: 2014Q3

REPORT INFORMATION
  Report Type: Spontaneous
  Country: US (occurrence: US)
  Receive Date: 20140923
  Receipt Date: 20140923
  Transmission Date: 20150326
  Serious: Yes (Other)
  Sender: FDA-Public Use
  Company Number: US-ELI_LILLY_AND_COMPANY-US201409004849

PATIENT
  Age: 66 Year
  Sex: Male

DRUGS (2)
  1. PROZAC [Suspect]
     Active Substance: FLUOXETINE HYDROCHLORIDE
     Indication: MAJOR DEPRESSION
     Dosage: 20 MG, QD
     Route: 065
  2. TRAZODONE [Interacting]
     Active Substance: TRAZODONE HYDROCHLORIDE
     Indication: SLEEP DISORDER
     Dosage: UNK UNK, UNKNOWN
     Route: 065

REACTIONS (4)
  - Neoplasm [Unknown]
  - Abdominal pain [Unknown]
  - Carcinoid tumour [Unknown]
  - Drug interaction [Unknown]

NARRATIVE: CASE EVENT DATE: 201408
